FAERS Safety Report 16970077 (Version 1)
Quarter: 2019Q4

REPORT INFORMATION
  Report Type: Report from Study
  Country: SG (occurrence: SG)
  Receive Date: 20191029
  Receipt Date: 20191029
  Transmission Date: 20200122
  Serious: Yes (Hospitalization)
  Sender: FDA-Public Use
  Company Number: PHHO2017SG005902

PATIENT
  Age: 77 Year
  Sex: Female
  Weight: 71.2 kg

DRUGS (8)
  1. PLACEBO [Suspect]
     Active Substance: UNSPECIFIED INGREDIENT
     Indication: CARDIAC FAILURE
     Dosage: UNK
     Route: 048
     Dates: start: 20161102, end: 20170215
  2. AZITHROMYCIN ANHYDROUS. [Suspect]
     Active Substance: AZITHROMYCIN ANHYDROUS
     Indication: PRODUCT USED FOR UNKNOWN INDICATION
     Dosage: 500 MG, QD
     Route: 042
     Dates: start: 20170320, end: 20170327
  3. SACUBITRIL,VALSARTAN [Suspect]
     Active Substance: SACUBITRIL\VALSARTAN
     Indication: CARDIAC FAILURE
     Dosage: 200 MG, BID
     Route: 048
     Dates: start: 20161102, end: 20170215
  4. FUROSEMIDE. [Concomitant]
     Active Substance: FUROSEMIDE
     Indication: HYPOTENSION
     Dosage: UNK
     Route: 065
  5. CEFTAZIDIME. [Suspect]
     Active Substance: CEFTAZIDIME
     Indication: PRODUCT USED FOR UNKNOWN INDICATION
     Dosage: 250 MG, BID
     Route: 065
     Dates: start: 20170320, end: 20170327
  6. BISOPROLOL [Concomitant]
     Active Substance: BISOPROLOL
     Indication: HYPOTENSION
     Dosage: UNK
     Route: 065
  7. ACETAMINOPHEN. [Concomitant]
     Active Substance: ACETAMINOPHEN
     Indication: PRODUCT USED FOR UNKNOWN INDICATION
     Route: 065
  8. BENZYLPENICILLIN [Suspect]
     Active Substance: PENICILLIN G
     Indication: PRODUCT USED FOR UNKNOWN INDICATION
     Dosage: 3 MILLION UNIT
     Route: 042
     Dates: start: 20170320, end: 20170323

REACTIONS (15)
  - Transaminases increased [Recovered/Resolved]
  - Rectal haemorrhage [Recovered/Resolved]
  - Dehydration [Recovered/Resolved]
  - Escherichia urinary tract infection [Recovered/Resolved]
  - Hypernatraemia [Recovered/Resolved]
  - Nausea [Recovered/Resolved]
  - Septic shock [Recovered/Resolved]
  - Thrombocytopenia [Recovered/Resolved]
  - Iron deficiency anaemia [Recovered/Resolved]
  - Hyperkalaemia [Recovered/Resolved]
  - Vitamin B12 deficiency [Recovered/Resolved]
  - Acute myocardial infarction [Recovered/Resolved]
  - Fluid overload [Recovered/Resolved]
  - Diarrhoea [Recovered/Resolved]
  - Pneumonia [Recovered/Resolved]

NARRATIVE: CASE EVENT DATE: 201703
